APPROVED DRUG PRODUCT: FINASTERIDE
Active Ingredient: FINASTERIDE
Strength: 5MG
Dosage Form/Route: TABLET;ORAL
Application: A076511 | Product #001 | TE Code: AB
Applicant: TEVA PHARMACEUTICALS USA INC
Approved: Dec 15, 2006 | RLD: No | RS: No | Type: RX